FAERS Safety Report 21795752 (Version 1)
Quarter: 2022Q4

REPORT INFORMATION
  Report Type: Spontaneous
  Country: US (occurrence: US)
  Receive Date: 20221229
  Receipt Date: 20221229
  Transmission Date: 20230113
  Serious: No
  Sender: FDA-Public Use
  Company Number: US-ABBVIE-4216508

PATIENT
  Age: 17 Year
  Sex: Female

DRUGS (1)
  1. HUMIRA [Suspect]
     Active Substance: ADALIMUMAB
     Indication: Hidradenitis
     Dosage: CESSATION DATE FOR INJECTION SITE ITCHING AND INJECTION SITE IRRITATION WERE 2022.
     Route: 058

REACTIONS (6)
  - Incorrect dose administered [Unknown]
  - Peripheral swelling [Unknown]
  - Injection site pruritus [Recovered/Resolved]
  - Malaise [Unknown]
  - Injection site irritation [Recovered/Resolved]
  - Product temperature excursion issue [Unknown]

NARRATIVE: CASE EVENT DATE: 20221101
